FAERS Safety Report 6416245-5 (Version None)
Quarter: 2009Q4

REPORT INFORMATION
  Report Type: 
  Country: None (occurrence: None)
  Receive Date: 20091027
  Receipt Date: 20091020
  Transmission Date: 20100525
  Serious: No
  Sender: FDA-Public Use
  Company Number: US-B.I. PHARMACEUTICALS,INC./RIDGEFIELD-2009-BP-11013BP

PATIENT
  Sex: Female
  Weight: 59.4 kg

DRUGS (6)
  1. SPIRIVA [Suspect]
     Indication: CHRONIC OBSTRUCTIVE PULMONARY DISEASE
     Dosage: 18 MCG
     Route: 055
     Dates: start: 20071101, end: 20090914
  2. COUMADIN [Concomitant]
     Indication: ANTICOAGULANT THERAPY
     Dates: start: 20080701
  3. PRILOSEC [Concomitant]
     Indication: GASTROOESOPHAGEAL REFLUX DISEASE
     Dosage: 20 MG
     Dates: start: 20080701
  4. ASTELIN [Concomitant]
     Indication: NASAL DISORDER
     Dates: start: 20080101
  5. DIAZEPAM [Concomitant]
     Dates: start: 20071101
  6. XOPENEX [Concomitant]
     Dates: start: 20071101

REACTIONS (5)
  - EAR PAIN [None]
  - FACIAL PAIN [None]
  - HEADACHE [None]
  - HERPES ZOSTER [None]
  - PRURITUS [None]
